FAERS Safety Report 6370927-2 (Version None)
Quarter: 2009Q3

REPORT INFORMATION
  Report Type: 
  Country: None (occurrence: None)
  Receive Date: 20090923
  Receipt Date: 20070606
  Transmission Date: 20100115
  Serious: Yes (Hospitalization)
  Sender: FDA-Public Use
  Company Number: US-ASTRAZENECA-2006UW22690

PATIENT
  Age: 15320 Day
  Sex: Female
  Weight: 112.7 kg

DRUGS (21)
  1. SEROQUEL [Suspect]
     Indication: HALLUCINATION, AUDITORY
     Dosage: 25 TO 400 MG
     Route: 048
     Dates: start: 20001211
  2. SEROQUEL [Suspect]
     Route: 048
     Dates: start: 20050705, end: 20060603
  3. ABILIFY [Concomitant]
  4. RISPERDAL [Concomitant]
  5. ZYPREXA [Concomitant]
  6. LORAZEPAM [Concomitant]
     Indication: ANXIETY
     Dosage: 1 MG TO 2 MG
     Route: 048
  7. LORAZEPAM [Concomitant]
     Dosage: 2 MG FLUCTUATING
     Route: 030
  8. PROVENTIL-HFA [Concomitant]
  9. COMBIVENT [Concomitant]
     Indication: DYSPNOEA
     Dosage: TWO PUFFS FLUCTUATING
  10. COMBIVENT [Concomitant]
     Indication: CHRONIC OBSTRUCTIVE PULMONARY DISEASE
     Dosage: TWO PUFFS FLUCTUATING
  11. FLOVENT [Concomitant]
     Dosage: 44 MCG TO 220 MCG
  12. ZOLOFT [Concomitant]
  13. TRAZODONE HYDROCHLORIDE [Concomitant]
  14. PREDNISONE [Concomitant]
     Dosage: 10 TO 20 MG
     Route: 048
  15. HYDROCHLOROTHIAZIDE [Concomitant]
  16. ADVAIR DISKUS 100/50 [Concomitant]
     Dosage: 500/50, 250/50
  17. ZOCOR [Concomitant]
     Route: 048
  18. ASPIRIN [Concomitant]
     Dosage: 81 MG TO 325 MG
  19. LISINOPRIL [Concomitant]
     Indication: CARDIAC DISORDER
     Dosage: 10 MG TO 20 MG
     Route: 048
  20. SINGULAIR [Concomitant]
     Indication: ASTHMA
     Route: 048
  21. SINGULAIR [Concomitant]
     Indication: DYSPNOEA
     Route: 048

REACTIONS (3)
  - CARDIAC FAILURE CONGESTIVE [None]
  - DIABETES MELLITUS [None]
  - HYPERTENSION [None]
